FAERS Safety Report 15820667 (Version 1)
Quarter: 2019Q1

REPORT INFORMATION
  Report Type: Spontaneous
  Country: US (occurrence: US)
  Receive Date: 20190111
  Receipt Date: 20190111
  Transmission Date: 20190417
  Serious: Yes (Disabling)
  Sender: FDA-Public Use
  Company Number: None

PATIENT
  Age: 67 Year
  Sex: Female
  Weight: 99.45 kg

DRUGS (12)
  1. AMLODIPINE [Concomitant]
     Active Substance: AMLODIPINE BESYLATE
  2. VITAMIN E [Concomitant]
     Active Substance: .ALPHA.-TOCOPHEROL
  3. CRANBERRY. [Concomitant]
     Active Substance: CRANBERRY
  4. IODINE. [Concomitant]
     Active Substance: IODINE
  5. SOY [Concomitant]
     Active Substance: SOY EXTRACT
  6. LOWER BOWEL STIMULANT [Concomitant]
  7. FISH OIL [Concomitant]
     Active Substance: FISH OIL
  8. VALSARTAN GENERIC FOR DIOVAN [Suspect]
     Active Substance: VALSARTAN
     Indication: HYPERTENSION
     Dosage: ?          QUANTITY:1 TABLET(S);?
     Route: 048
     Dates: start: 20181222, end: 20190103
  9. CALCIUM [Concomitant]
     Active Substance: CALCIUM
  10. TURMERIC [Concomitant]
     Active Substance: HERBALS\TURMERIC
  11. CENTRUM SILVER [Concomitant]
     Active Substance: MINERALS\VITAMINS
  12. CINNAMON. [Concomitant]
     Active Substance: CINNAMON

REACTIONS (4)
  - Headache [None]
  - Arthralgia [None]
  - Musculoskeletal pain [None]
  - Myalgia [None]

NARRATIVE: CASE EVENT DATE: 20181229
